FAERS Safety Report 9849996 (Version 1)
Quarter: 2013Q4

REPORT INFORMATION
  Report Type: Spontaneous
  Country: US (occurrence: None)
  Receive Date: 20131226
  Receipt Date: 20131226
  Transmission Date: 20140711
  Serious: Yes (Other)
  Sender: FDA-Public Use
  Company Number: PHEH2012US014380

PATIENT
  Sex: Female

DRUGS (3)
  1. AFINITOR [Suspect]
     Indication: NEUROENDOCRINE CARCINOMA
     Route: 048
  2. ZOMETA (ZOLEDRONIC ACID) [Concomitant]
  3. SANDOSTATIN (OCTREOTIDE) [Concomitant]

REACTIONS (9)
  - Pancytopenia [None]
  - Pain [None]
  - Bone pain [None]
  - Abdominal tenderness [None]
  - Anxiety [None]
  - Diarrhoea [None]
  - Decreased appetite [None]
  - Nausea [None]
  - Oedema peripheral [None]
